FAERS Safety Report 11490024 (Version 1)
Quarter: 2015Q3

REPORT INFORMATION
  Report Type: Spontaneous
  Country: US (occurrence: US)
  Receive Date: 20150910
  Receipt Date: 20150910
  Transmission Date: 20151125
  Serious: No
  Sender: FDA-Public Use
  Company Number: US-TEVA-575065USA

PATIENT
  Age: 43 Year
  Sex: Female

DRUGS (2)
  1. CAPECITABINE. [Suspect]
     Active Substance: CAPECITABINE
     Indication: COLON CANCER
     Dosage: 300 MILLIGRAM DAILY;
     Route: 048
     Dates: start: 20150605
  2. CAPECITABINE. [Suspect]
     Active Substance: CAPECITABINE
     Indication: HEPATIC CANCER
     Dosage: 1000 MILLIGRAM DAILY;
     Route: 048
     Dates: start: 20150605

REACTIONS (2)
  - Neuropathy peripheral [Unknown]
  - Stomatitis [Unknown]

NARRATIVE: CASE EVENT DATE: 201506
